FAERS Safety Report 8429287-5 (Version None)
Quarter: 2012Q2

REPORT INFORMATION
  Report Type: 
  Country: None (occurrence: None)
  Receive Date: 20120612
  Receipt Date: 20120611
  Transmission Date: 20120825
  Serious: Yes (Death)
  Sender: FDA-Public Use
  Company Number: PHHY2012ES049715

PATIENT
  Age: 67 Year
  Sex: Female

DRUGS (2)
  1. EVEROLIMUS [Suspect]
     Indication: BREAST CANCER METASTATIC
     Dosage: 10 MG, DAILY
     Route: 048
     Dates: start: 20120426, end: 20120524
  2. EXEMESTANE [Concomitant]
     Dosage: 10 MG, QD

REACTIONS (4)
  - THROMBOCYTOPENIA [None]
  - ACUTE RESPIRATORY FAILURE [None]
  - RESPIRATORY DISORDER [None]
  - PNEUMONIA ASPIRATION [None]
